FAERS Safety Report 11761742 (Version 1)
Quarter: 2015Q4

REPORT INFORMATION
  Report Type: Spontaneous
  Country: US (occurrence: US)
  Receive Date: 20151120
  Receipt Date: 20151120
  Transmission Date: 20160304
  Serious: No
  Sender: FDA-Public Use
  Company Number: US-ELI_LILLY_AND_COMPANY-US201301002762

PATIENT
  Age: 60 Year
  Sex: Female

DRUGS (1)
  1. FORTEO [Suspect]
     Active Substance: TERIPARATIDE
     Indication: OSTEOPOROSIS
     Dosage: UNK, UNKNOWN
     Dates: start: 20130106

REACTIONS (10)
  - Gingival pain [Unknown]
  - Nausea [Unknown]
  - Abdominal pain [Unknown]
  - Insomnia [Unknown]
  - Muscle spasms [Unknown]
  - Malaise [Unknown]
  - Headache [Unknown]
  - Eye pain [Unknown]
  - Pain [Unknown]
  - Sleep disorder [Unknown]

NARRATIVE: CASE EVENT DATE: 20130106
